FAERS Safety Report 24831954 (Version 1)
Quarter: 2025Q1

REPORT INFORMATION
  Report Type: Spontaneous
  Country: US (occurrence: None)
  Receive Date: 20250110
  Receipt Date: 20250110
  Transmission Date: 20250408
  Serious: No
  Sender: FDA-CTU
  Company Number: None

PATIENT
  Age: 62 Year
  Sex: Female

DRUGS (11)
  1. FORTEO [Suspect]
     Active Substance: TERIPARATIDE
     Indication: Senile osteoporosis
     Dosage: FREQUENCY : DAILY;?
     Route: 058
     Dates: start: 20241217
  2. TYLENOL [Concomitant]
     Active Substance: ACETAMINOPHEN
  3. CA.LCITRIOL [Concomitant]
  4. MAGNESIUM OXIDE [Concomitant]
     Active Substance: MAGNESIUM OXIDE
  5. VITAMIN D [Concomitant]
     Active Substance: VITAMIN D NOS
  6. COLCHIGINE [Concomitant]
  7. DULOXETINE [Concomitant]
     Active Substance: DULOXETINE
  8. HYDROXYZINE [Concomitant]
     Active Substance: HYDROXYZINE HYDROCHLORIDE
  9. METHOCARBAMOL [Concomitant]
     Active Substance: METHOCARBAMOL
  10. OXYCOOONE/ACETAMINOPHEN [Concomitant]
  11. TRAZODONE [Concomitant]
     Active Substance: TRAZODONE HYDROCHLORIDE

REACTIONS (2)
  - Fatigue [None]
  - Arthralgia [None]

NARRATIVE: CASE EVENT DATE: 20241220
